FAERS Safety Report 5633851-6 (Version None)
Quarter: 2008Q1

REPORT INFORMATION
  Report Type: 
  Country: None (occurrence: None)
  Receive Date: 20080219
  Receipt Date: 20080201
  Transmission Date: 20080703
  Serious: Yes (Other)
  Sender: FDA-Public Use
  Company Number: 2008JP000658

PATIENT
  Age: 98 Year
  Sex: Female

DRUGS (5)
  1. VESICARE [Suspect]
     Indication: HYPERTONIC BLADDER
     Dosage: 5 MG, ORAL; 2.5 MG, ORAL
     Route: 048
     Dates: start: 20071219
  2. MUCOSOLVAN (AMBROXOL HYDROCHLORIDE) PER ORAL NOS [Concomitant]
  3. DASEN (SERRAPEPTASE) PER ORAL NOS [Concomitant]
  4. LEVOFLOXACIN [Concomitant]
  5. PL GRAN. (PROMETHAZINE METHYLENE DISALICYLATE, SALICYLAMIDE) GRANULE [Concomitant]

REACTIONS (2)
  - ABASIA [None]
  - MUSCULAR WEAKNESS [None]
